FAERS Safety Report 4500392-9 (Version None)
Quarter: 2004Q3

REPORT INFORMATION
  Report Type: 
  Country: None (occurrence: None)
  Receive Date: 20040928
  Receipt Date: 20040803
  Transmission Date: 20050211
  Serious: No
  Sender: FDA-Public Use
  Company Number: 04P-163-0268946-00

PATIENT
  Age: 35 Year
  Sex: Female
  Weight: 81.6475 kg

DRUGS (12)
  1. HUMIRA [Suspect]
     Indication: RHEUMATOID ARTHRITIS
     Dosage: 40 MG, SUBCUTANEOUS
     Route: 058
     Dates: start: 20040621
  2. METHOTREXATE [Concomitant]
  3. PERDNISONE [Concomitant]
  4. HYDROXYCHLOROQUINE PHOSPHATE [Concomitant]
  5. OMEPRAZOLE [Concomitant]
  6. PRED FORTE [Concomitant]
  7. FOLIC ACID [Concomitant]
  8. FLUOXETINE HYDROCHLORIDE [Concomitant]
  9. CYCLOBENZAPRINE HYDROCHLORIDE [Concomitant]
  10. ZOLPIDEM TARTRATE [Concomitant]
  11. FLUCONAZOLE [Concomitant]
  12. DARVOCET [Concomitant]

REACTIONS (1)
  - INJECTION SITE HAEMORRHAGE [None]
